FAERS Safety Report 19271937 (Version 1)
Quarter: 2021Q2

REPORT INFORMATION
  Report Type: Spontaneous
  Country: US (occurrence: US)
  Receive Date: 20210519
  Receipt Date: 20210519
  Transmission Date: 20210717
  Serious: Yes (Other)
  Sender: FDA-Public Use
  Company Number: US-NOVEN PHARMACEUTICALS, INC.-2021US000688

PATIENT
  Sex: Male

DRUGS (1)
  1. DAYTRANA [Suspect]
     Active Substance: METHYLPHENIDATE
     Indication: PRODUCT USED FOR UNKNOWN INDICATION
     Dosage: 20 MG/9HOURS, UNK
     Route: 062

REACTIONS (6)
  - Anxiety [Unknown]
  - Drug withdrawal syndrome [Unknown]
  - Device difficult to use [Not Recovered/Not Resolved]
  - Device adhesion issue [Unknown]
  - Product administration error [Not Recovered/Not Resolved]
  - Product dose omission issue [Recovered/Resolved]
